FAERS Safety Report 5084151-7 (Version None)
Quarter: 2006Q3

REPORT INFORMATION
  Report Type: 
  Country: None (occurrence: None)
  Receive Date: 20060821
  Receipt Date: 20060627
  Transmission Date: 20061208
  Serious: Yes (Other)
  Sender: FDA-Public Use
  Company Number: US-BAYER-200612718BCC

PATIENT
  Age: 26 Year
  Sex: Male
  Weight: 73 kg

DRUGS (2)
  1. ASPIRIN [Suspect]
     Indication: HEADACHE
     Dosage: UNIT DOSE: 325 MG
     Route: 048
     Dates: start: 20060625, end: 20060626
  2. ALEVE (CAPLET) [Concomitant]
     Indication: DRUG USE FOR UNKNOWN INDICATION
     Route: 048

REACTIONS (2)
  - HEARING IMPAIRED [None]
  - HYPOAESTHESIA [None]
